FAERS Safety Report 4910194-7 (Version None)
Quarter: 2006Q1

REPORT INFORMATION
  Report Type: 
  Country: None (occurrence: None)
  Receive Date: 20060213
  Receipt Date: 20051013
  Transmission Date: 20060701
  Serious: Yes (Hospitalization)
  Sender: FDA-Public Use
  Company Number: US-MERCK-0510USA07299

PATIENT
  Age: 73 Year
  Sex: Female
  Weight: 100 kg

DRUGS (12)
  1. VIOXX [Suspect]
     Indication: FIBROMYALGIA
     Route: 048
     Dates: start: 19990723, end: 20040809
  2. [THERAPY UNSPECIFIED] [Concomitant]
     Route: 065
  3. KLONOPIN [Concomitant]
     Indication: ANXIETY
     Route: 065
  4. EFFEXOR XR [Concomitant]
     Indication: DEPRESSION
     Route: 065
  5. GLUCOPHAGE [Concomitant]
     Route: 065
  6. HUMULIN [Concomitant]
     Indication: DIABETES MELLITUS
     Route: 065
  7. NEXIUM [Concomitant]
     Route: 065
  8. REZULIN [Concomitant]
     Indication: DIABETES MELLITUS
     Route: 065
  9. NOVOLIN [Concomitant]
     Indication: DIABETES MELLITUS
     Route: 065
  10. PREVACID [Concomitant]
     Route: 065
  11. ACTOS [Concomitant]
     Indication: DIABETES MELLITUS
     Route: 065
  12. AVANDIA [Concomitant]
     Indication: DIABETES MELLITUS
     Route: 065

REACTIONS (16)
  - APPENDICECTOMY [None]
  - BLOOD CHOLESTEROL INCREASED [None]
  - BLOOD GLUCOSE INCREASED [None]
  - CARPAL TUNNEL SYNDROME [None]
  - CHEST DISCOMFORT [None]
  - CHEST PAIN [None]
  - CORONARY ARTERIAL STENT INSERTION [None]
  - DEPRESSION [None]
  - DIABETES MELLITUS [None]
  - GASTROOESOPHAGEAL REFLUX DISEASE [None]
  - HYPERTENSION [None]
  - INTERVERTEBRAL DISC DISORDER [None]
  - ISCHAEMIA [None]
  - MYOCARDIAL INFARCTION [None]
  - MYOCARDIAL ISCHAEMIA [None]
  - THYROID CYST [None]
